FAERS Safety Report 12352220 (Version 1)
Quarter: 2016Q2

REPORT INFORMATION
  Report Type: Report from Study
  Country: CA (occurrence: CA)
  Receive Date: 20160510
  Receipt Date: 20160510
  Transmission Date: 20160815
  Serious: Yes (Death, Other)
  Sender: FDA-Public Use
  Company Number: PHHY2015CA122448

PATIENT
  Age: 58 Year
  Sex: Male

DRUGS (3)
  1. SANDOSTATIN LAR DEPOT [Suspect]
     Active Substance: OCTREOTIDE ACETATE
     Indication: NEUROENDOCRINE CARCINOMA
     Dosage: 60 MG, BIW (EVERY 2 WEEKS)
     Route: 030
     Dates: start: 20060901
  2. SANDOSTATIN [Suspect]
     Active Substance: OCTREOTIDE ACETATE
     Indication: NEUROENDOCRINE CARCINOMA
     Dosage: 150 UG, TID
     Route: 058
     Dates: start: 20160208
  3. AFINITOR [Suspect]
     Active Substance: EVEROLIMUS
     Indication: PRODUCT USED FOR UNKNOWN INDICATION
     Route: 065

REACTIONS (12)
  - Death [Fatal]
  - Oedema [Unknown]
  - Oedema peripheral [Unknown]
  - Depressed level of consciousness [Unknown]
  - Facial wasting [Unknown]
  - Lid sulcus deepened [Unknown]
  - Incorrect dose administered [Unknown]
  - Hypotonia [Unknown]
  - General physical health deterioration [Unknown]
  - Ocular icterus [Unknown]
  - Syringe issue [Unknown]
  - Inappropriate schedule of drug administration [Unknown]

NARRATIVE: CASE EVENT DATE: 20060901
